FAERS Safety Report 24951719 (Version 1)
Quarter: 2025Q1

REPORT INFORMATION
  Report Type: Spontaneous
  Country: US (occurrence: US)
  Receive Date: 20250210
  Receipt Date: 20250210
  Transmission Date: 20250409
  Serious: No
  Sender: PFIZER
  Company Number: US-PFIZER INC-202500030412

PATIENT
  Sex: Female

DRUGS (3)
  1. AZITHROMYCIN [Suspect]
     Active Substance: AZITHROMYCIN
     Indication: Colitis ulcerative
  2. BACTROBAN [Suspect]
     Active Substance: MUPIROCIN CALCIUM
     Indication: Colitis ulcerative
  3. CIPRO [Suspect]
     Active Substance: CIPROFLOXACIN HYDROCHLORIDE
     Indication: Colitis ulcerative

REACTIONS (1)
  - Abdominal discomfort [Unknown]
